FAERS Safety Report 8185894-9 (Version None)
Quarter: 2012Q1

REPORT INFORMATION
  Report Type: 
  Country: None (occurrence: None)
  Receive Date: 20120305
  Receipt Date: 20120223
  Transmission Date: 20120608
  Serious: Yes (Hospitalization)
  Sender: FDA-Public Use
  Company Number: BR-ASTRAZENECA-2012SE12635

PATIENT
  Age: 80 Year
  Sex: Female
  Weight: 65 kg

DRUGS (6)
  1. RISPERDAL [Concomitant]
     Route: 048
     Dates: start: 20060101
  2. SIMVASTATIN [Concomitant]
     Route: 048
     Dates: start: 20080101
  3. QUETIAPINE FUMARATE [Suspect]
     Indication: DEMENTIA ALZHEIMER'S TYPE
     Dosage: TWO TIMES A DAY
     Route: 048
     Dates: start: 20120217
  4. MERITOR [Concomitant]
     Indication: DIABETES MELLITUS
     Route: 048
     Dates: start: 20080101
  5. SEROQUEL [Suspect]
     Indication: DEMENTIA ALZHEIMER'S TYPE
     Route: 048
     Dates: start: 20080101, end: 20120216
  6. BENERVA [Concomitant]
     Indication: VITAMIN SUPPLEMENTATION
     Route: 048
     Dates: start: 20080101

REACTIONS (9)
  - FALL [None]
  - HALLUCINATION [None]
  - BLOOD GLUCOSE FLUCTUATION [None]
  - AGGRESSION [None]
  - HYPERTENSION [None]
  - OFF LABEL USE [None]
  - FEMUR FRACTURE [None]
  - ARTHRITIS [None]
  - WEIGHT DECREASED [None]
